FAERS Safety Report 7071448-4 (Version None)
Quarter: 2010Q4

REPORT INFORMATION
  Report Type: 
  Country: None (occurrence: None)
  Receive Date: 20101029
  Receipt Date: 20090902
  Transmission Date: 20110411
  Serious: Yes (Other)
  Sender: FDA-Public Use
  Company Number: A0805689A

PATIENT
  Age: 44 Year
  Sex: Female

DRUGS (2)
  1. ADVAIR DISKUS 100/50 [Suspect]
     Indication: ASTHMA
     Route: 055
     Dates: start: 20090101, end: 20090101
  2. MULTIPLE MEDICATIONS [Concomitant]

REACTIONS (2)
  - ALLERGIC GRANULOMATOUS ANGIITIS [None]
  - BRONCHOSPASM PARADOXICAL [None]
